FAERS Safety Report 8547775-8 (Version None)
Quarter: 2012Q3

REPORT INFORMATION
  Report Type: 
  Country: None (occurrence: None)
  Receive Date: 20120727
  Receipt Date: 20120104
  Transmission Date: 20120928
  Serious: Yes (Other)
  Sender: FDA-Public Use
  Company Number: US-ASTRAZENECA-2012SE00629

PATIENT
  Sex: Female

DRUGS (1)
  1. SEROQUEL [Suspect]
     Indication: BIPOLAR DISORDER
     Route: 048

REACTIONS (6)
  - FEELING ABNORMAL [None]
  - MENTAL DISORDER [None]
  - DEPRESSED MOOD [None]
  - SUICIDAL IDEATION [None]
  - INSOMNIA [None]
  - DRUG DOSE OMISSION [None]
